FAERS Safety Report 6308999-3 (Version None)
Quarter: 2009Q3

REPORT INFORMATION
  Report Type: 
  Country: None (occurrence: None)
  Receive Date: 20090813
  Receipt Date: 20090805
  Transmission Date: 20100115
  Serious: Yes (Other)
  Sender: FDA-Public Use
  Company Number: JP-AMGEN-US359838

PATIENT
  Age: 58 Year
  Sex: Female

DRUGS (3)
  1. ENBREL [Suspect]
     Indication: RHEUMATOID ARTHRITIS
     Dosage: UNSPECIFIED
     Dates: start: 20060601
  2. METHOTREXATE [Suspect]
  3. PREDNISOLONE [Concomitant]

REACTIONS (3)
  - SEBORRHOEIC KERATOSIS [None]
  - SKIN DISCOLOURATION [None]
  - SKIN NODULE [None]
